APPROVED DRUG PRODUCT: HYDROCORTISONE
Active Ingredient: HYDROCORTISONE
Strength: 2.5%
Dosage Form/Route: LOTION;TOPICAL
Application: A203804 | Product #001
Applicant: ENCUBE ETHICALS PRIVATE LTD
Approved: Jul 27, 2018 | RLD: No | RS: No | Type: DISCN